FAERS Safety Report 5689280-2 (Version None)
Quarter: 2008Q1

REPORT INFORMATION
  Report Type: 
  Country: None (occurrence: None)
  Receive Date: 20080331
  Receipt Date: 20080318
  Transmission Date: 20080703
  Serious: Yes (Hospitalization)
  Sender: FDA-Public Use
  Company Number: US-ELI_LILLY_AND_COMPANY-US200803004160

PATIENT
  Sex: Female

DRUGS (2)
  1. FORTEO [Suspect]
     Indication: COMPRESSION FRACTURE
     Dates: start: 20070101
  2. NORCO [Concomitant]
     Indication: BACK PAIN

REACTIONS (2)
  - COMPRESSION FRACTURE [None]
  - STAPHYLOCOCCAL INFECTION [None]
